FAERS Safety Report 23875308 (Version 2)
Quarter: 2025Q2

REPORT INFORMATION
  Report Type: Report from Study
  Country: PK (occurrence: PK)
  Receive Date: 20240520
  Receipt Date: 20250403
  Transmission Date: 20250717
  Serious: No
  Sender: CHIESI
  Company Number: PK-AMRYT PHARMACEUTICALS DAC-AEGR007121

PATIENT
  Sex: Female

DRUGS (1)
  1. METRELEPTIN [Suspect]
     Active Substance: METRELEPTIN
     Indication: Congenital generalised lipodystrophy
     Dosage: 5 MILLIGRAM, QD
     Route: 058
     Dates: start: 2012

REACTIONS (1)
  - Maternal exposure during pregnancy [Unknown]
